FAERS Safety Report 4684150-0 (Version None)
Quarter: 2005Q2

REPORT INFORMATION
  Report Type: 
  Country: None (occurrence: None)
  Receive Date: 20050607
  Receipt Date: 20050601
  Transmission Date: 20051028
  Serious: Yes (Other)
  Sender: FDA-Public Use
  Company Number: MC200500379

PATIENT
  Age: 81 Year
  Sex: Female
  Weight: 79 kg

DRUGS (2)
  1. ARIXTRA [Suspect]
     Indication: DRUG USE FOR UNKNOWN INDICATION
     Route: 065
     Dates: end: 20050418
  2. BIVALIRUDIN [Suspect]
     Indication: MITRAL VALVE REPLACEMENT
     Route: 042
     Dates: start: 20050421, end: 20050421

REACTIONS (2)
  - COAGULATION TIME PROLONGED [None]
  - HAEMORRHAGE [None]
